FAERS Safety Report 4917365-4 (Version None)
Quarter: 2006Q1

REPORT INFORMATION
  Report Type: 
  Country: None (occurrence: None)
  Receive Date: 20060221
  Receipt Date: 20051228
  Transmission Date: 20060701
  Serious: Yes (Hospitalization, Other)
  Sender: FDA-Public Use
  Company Number: US-GLAXOSMITHKLINE-A0587066A

PATIENT
  Age: 47 Year
  Sex: Female

DRUGS (3)
  1. LAMICTAL [Suspect]
     Indication: DEPRESSION
     Route: 048
     Dates: start: 20030101, end: 20050601
  2. SEROQUEL [Concomitant]
  3. XANAX [Concomitant]

REACTIONS (3)
  - ARTHRALGIA [None]
  - MYOSITIS [None]
  - POLYMYOSITIS [None]
